FAERS Safety Report 8938632 (Version 1)
Quarter: 2012Q4

REPORT INFORMATION
  Report Type: Spontaneous
  Country: US (occurrence: None)
  Receive Date: 20121129
  Receipt Date: 20121129
  Transmission Date: 20130627
  Serious: Yes (Disabling, Other)
  Sender: FDA-Public Use
  Company Number: None

PATIENT
  Age: 65 Year
  Sex: Male
  Weight: 124.74 kg

DRUGS (1)
  1. ATORVASTATIN [Suspect]
     Dosage: 40 mg daily po
     Route: 048
     Dates: start: 20120808, end: 20121120

REACTIONS (1)
  - Rhabdomyolysis [None]
